FAERS Safety Report 14206906 (Version 1)
Quarter: 2017Q4

REPORT INFORMATION
  Report Type: Spontaneous
  Country: US (occurrence: US)
  Receive Date: 20171121
  Receipt Date: 20171121
  Transmission Date: 20180321
  Serious: No
  Sender: FDA-Public Use
  Company Number: US-009507513-1711USA004792

PATIENT
  Age: 75 Year
  Sex: Male

DRUGS (2)
  1. RYTARY [Concomitant]
     Active Substance: CARBIDOPA\LEVODOPA
     Dosage: UNK
  2. SINEMET [Suspect]
     Active Substance: CARBIDOPA\LEVODOPA
     Dosage: 1 TABLET QID

REACTIONS (2)
  - Drug ineffective [Unknown]
  - Therapeutic response shortened [Unknown]
